FAERS Safety Report 4273599-6 (Version None)
Quarter: 2004Q1

REPORT INFORMATION
  Report Type: 
  Country: None (occurrence: None)
  Receive Date: 20040116
  Receipt Date: 20040116
  Transmission Date: 20041129
  Serious: Yes (Other)
  Sender: FDA-Public Use
  Company Number: None

PATIENT
  Age: 83 Year
  Sex: Male
  Weight: 93.2 kg

DRUGS (1)
  1. HYDROCHLOROTHIAZIDE [Suspect]

REACTIONS (1)
  - HYPONATRAEMIA [None]
